FAERS Safety Report 26132881 (Version 2)
Quarter: 2025Q4

REPORT INFORMATION
  Report Type: Report from Study
  Country: US (occurrence: US)
  Receive Date: 20251209
  Receipt Date: 20251211
  Transmission Date: 20260117
  Serious: Yes (Hospitalization)
  Sender: ABBVIE
  Company Number: US-ABBVIE-6577702

PATIENT
  Age: 60 Year
  Sex: Female

DRUGS (5)
  1. SKYRIZI [Suspect]
     Active Substance: RISANKIZUMAB-RZAA
     Indication: Psoriasis
     Dosage: FORM STRENGTHS: 150 MILLIGRAM
     Route: 058
     Dates: start: 20250710
  2. VITAMIN B12 [Concomitant]
     Active Substance: CYANOCOBALAMIN
     Indication: Vitamin supplementation
  3. ATIVAN [Concomitant]
     Active Substance: LORAZEPAM
     Indication: Anxiety
  4. VITAMIN D3 [Concomitant]
     Active Substance: CHOLECALCIFEROL
     Indication: Vitamin supplementation
  5. ASPIRIN [Concomitant]
     Active Substance: ASPIRIN
     Indication: Aortic aneurysm

REACTIONS (6)
  - Flank pain [Not Recovered/Not Resolved]
  - Headache [Recovered/Resolved]
  - Fatigue [Recovered/Resolved]
  - Arthralgia [Recovered/Resolved]
  - Drug ineffective [Unknown]
  - White blood cell count increased [Unknown]

NARRATIVE: CASE EVENT DATE: 20250101
